FAERS Safety Report 9459834 (Version 1)
Quarter: 2013Q3

REPORT INFORMATION
  Report Type: Spontaneous
  Country: FR (occurrence: FR)
  Receive Date: 20130815
  Receipt Date: 20130815
  Transmission Date: 20140515
  Serious: Yes (Hospitalization)
  Sender: FDA-Public Use
  Company Number: FR-UCBSA-094751

PATIENT
  Age: 67 Year
  Sex: Male

DRUGS (8)
  1. KEPPRA [Suspect]
     Route: 048
     Dates: start: 20130620, end: 20130624
  2. JANUVIA [Concomitant]
  3. TRIATEC [Concomitant]
  4. GLUCOPHAGE [Concomitant]
  5. TAHOR [Concomitant]
  6. URBANYL [Concomitant]
  7. URBANYL [Concomitant]
     Dosage: DAILY DOSE: 25 MG (10 - 5 -10)
  8. KARDEGIC [Concomitant]

REACTIONS (2)
  - Abnormal behaviour [Unknown]
  - Delirium [Unknown]
